FAERS Safety Report 22699748 (Version 2)
Quarter: 2024Q1

REPORT INFORMATION
  Report Type: Report from Study
  Country: US (occurrence: US)
  Receive Date: 20230713
  Receipt Date: 20240103
  Transmission Date: 20240410
  Serious: Yes (Hospitalization, Other)
  Sender: FDA-Public Use
  Company Number: US-TAKEDA-US202012845

PATIENT
  Sex: Male

DRUGS (2)
  1. HUMAN IMMUNOGLOBULIN G [Suspect]
     Active Substance: HUMAN IMMUNOGLOBULIN G
     Indication: Primary immunodeficiency syndrome
     Dosage: UNK
     Route: 065
  2. STELARA [Concomitant]
     Active Substance: USTEKINUMAB
     Indication: Skin disorder
     Dosage: UNK
     Route: 065

REACTIONS (11)
  - Rectal haemorrhage [Unknown]
  - Gastrointestinal disorder [Recovering/Resolving]
  - Nervousness [Unknown]
  - Infection [Unknown]
  - COVID-19 [Recovered/Resolved]
  - Skin disorder [Unknown]
  - Hair disorder [Unknown]
  - Infection parasitic [Recovered/Resolved]
  - Anaemia [Unknown]
  - Rash [Unknown]
  - Inappropriate schedule of product administration [Not Recovered/Not Resolved]
